FAERS Safety Report 9285269 (Version 4)
Quarter: 2013Q2

REPORT INFORMATION
  Report Type: Report from Study
  Country: US (occurrence: US)
  Receive Date: 20130513
  Receipt Date: 20130617
  Transmission Date: 20140414
  Serious: Yes (Other)
  Sender: FDA-Public Use
  Company Number: US-TEVA-403796USA

PATIENT
  Age: 18 Year
  Sex: Female
  Weight: 83.99 kg

DRUGS (2)
  1. CLARAVIS [Suspect]
     Dosage: 1 DOSAGE FORMS DAILY; 40 MG QD ALTERNATING WITH 60 MG QD
     Dates: start: 20121121, end: 20130425
  2. ORAL CONTRACEPTIVE NOS [Concomitant]

REACTIONS (1)
  - Unintended pregnancy [Recovered/Resolved]
